FAERS Safety Report 24445004 (Version 2)
Quarter: 2024Q4

REPORT INFORMATION
  Report Type: Report from Study
  Country: US (occurrence: US)
  Receive Date: 20241016
  Receipt Date: 20241017
  Transmission Date: 20250114
  Serious: No
  Sender: ROCHE
  Company Number: US-ROCHE-3031259

PATIENT
  Age: 53 Year
  Sex: Female
  Weight: 63.5 kg

DRUGS (20)
  1. RITUXAN [Suspect]
     Active Substance: RITUXIMAB
     Indication: Rheumatoid arthritis
     Dosage: 500 MG/ML SOLUTION 1000 MG (2 DOSES) 2 WEEKS APART EVERY 6 MONTH, ANTICIPATED DATE OF TREATMENT: 01/
     Route: 041
  2. KRILL OIL [Concomitant]
     Active Substance: DIETARY SUPPLEMENT\KRILL OIL
     Route: 048
  3. COLLAGEN [Concomitant]
     Active Substance: COLLAGEN
     Dosage: AS DIRECTED EXTERNALLY
  4. VITAMIN C [Concomitant]
     Active Substance: ASCORBIC ACID
     Route: 048
  5. RALOXIFENE [Concomitant]
     Active Substance: RALOXIFENE
     Route: 048
  6. EPINASTINE HCL [Concomitant]
     Active Substance: EPINASTINE HYDROCHLORIDE
     Dosage: 1 DROP
     Route: 047
  7. HERBALS\TURMERIC [Concomitant]
     Active Substance: HERBALS\TURMERIC
     Route: 048
  8. TRAMADOL HCL [Concomitant]
     Active Substance: TRAMADOL HYDROCHLORIDE
     Dosage: ONLY PRN
     Route: 048
  9. VITAMIN D3 [Concomitant]
     Active Substance: CHOLECALCIFEROL
     Dosage: 1000 UT
     Route: 048
  10. ALENDRONATE SODIUM [Concomitant]
     Active Substance: ALENDRONATE SODIUM
     Dosage: 1 TABLET 30 MINUTES BEFORE THE FIRST FOOD, BEVERAGE OR MEDICINE OF THE DAY
     Route: 048
  11. METHOTREXATE SODIUM [Concomitant]
     Active Substance: METHOTREXATE SODIUM
     Dosage: 7 TABLET ORALLY (2 TABLET ON WEDNESDAY, MONDAY AND 3 ON FRIDAY)
     Route: 048
  12. PLAQUENIL [Concomitant]
     Active Substance: HYDROXYCHLOROQUINE SULFATE
     Route: 048
  13. PREDNISONE [Concomitant]
     Active Substance: PREDNISONE
     Route: 048
  14. PREDNISONE [Concomitant]
     Active Substance: PREDNISONE
     Dosage: 10 MG TABLED BID FOR 3 DAYS THEN DECREASE TO 1/2 TABLET EEVRY DAY
     Route: 048
  15. ENBREL [Concomitant]
     Active Substance: ETANERCEPT
  16. DICLOFENAC [Concomitant]
     Active Substance: DICLOFENAC
  17. IBUPROFEN [Concomitant]
     Active Substance: IBUPROFEN
  18. CALCIUM CITRATE\CHOLECALCIFEROL [Concomitant]
     Active Substance: CALCIUM CITRATE\CHOLECALCIFEROL
  19. SOLU-MEDROL [Concomitant]
     Active Substance: METHYLPREDNISOLONE SODIUM SUCCINATE
     Dosage: IVP
  20. BENADRYL [Concomitant]
     Active Substance: DIPHENHYDRAMINE HYDROCHLORIDE

REACTIONS (13)
  - Weight increased [Unknown]
  - Foreign body sensation in eyes [Unknown]
  - Dry eye [Unknown]
  - Dry mouth [Unknown]
  - Cough [Unknown]
  - Photosensitivity reaction [Unknown]
  - Nocturia [Unknown]
  - Vulvovaginal dryness [Unknown]
  - Tinnitus [Unknown]
  - Arthralgia [Unknown]
  - Arthralgia [Unknown]
  - Eye pruritus [Unknown]
  - Eye pain [Unknown]
